FAERS Safety Report 5415074-9 (Version None)
Quarter: 2007Q3

REPORT INFORMATION
  Report Type: 
  Country: None (occurrence: None)
  Receive Date: 20070815
  Receipt Date: 20070516
  Transmission Date: 20080115
  Serious: No
  Sender: FDA-Public Use
  Company Number: A0651669A

PATIENT
  Age: 65 Year
  Sex: Male

DRUGS (8)
  1. COREG CR [Suspect]
     Dosage: 40MG PER DAY
     Route: 048
     Dates: start: 20070426
  2. METFORMIN HCL [Concomitant]
  3. GLYBURIDE [Concomitant]
  4. LASIX [Concomitant]
  5. POTASSIUM CHLORIDE [Concomitant]
  6. ZOCOR [Concomitant]
  7. LISINOPRIL [Concomitant]
  8. ASPIRIN [Concomitant]

REACTIONS (1)
  - INSOMNIA [None]
